FAERS Safety Report 6501179-8 (Version None)
Quarter: 2009Q4

REPORT INFORMATION
  Report Type: 
  Country: None (occurrence: None)
  Receive Date: 20091216
  Receipt Date: 20090903
  Transmission Date: 20100525
  Serious: No
  Sender: FDA-Public Use
  Company Number: A0805875A

PATIENT
  Sex: Male

DRUGS (2)
  1. COMMIT [Suspect]
  2. NICODERM CQ [Suspect]

REACTIONS (1)
  - HYPERSENSITIVITY [None]
